FAERS Safety Report 9731930 (Version 1)
Quarter: 2013Q4

REPORT INFORMATION
  Report Type: Spontaneous
  Country: ES (occurrence: ES)
  Receive Date: 20131205
  Receipt Date: 20131205
  Transmission Date: 20140711
  Serious: No
  Sender: FDA-Public Use
  Company Number: PHHY2013ES141419

PATIENT
  Sex: 0

DRUGS (4)
  1. GLIVEC [Suspect]
     Dosage: UNK UKN, UNK
  2. NILOTINIB [Suspect]
     Dosage: UNK UKN, UNK
  3. BOSUTINIB [Suspect]
     Dosage: 500 MG, UNK
  4. DASATINIB [Suspect]
     Dosage: UNK UKN, UNK

REACTIONS (1)
  - Drug intolerance [Unknown]
